FAERS Safety Report 20536260 (Version 2)
Quarter: 2023Q1

REPORT INFORMATION
  Report Type: Report from Study
  Country: IN (occurrence: IN)
  Receive Date: 20220302
  Receipt Date: 20230218
  Transmission Date: 20230418
  Serious: Yes (Other)
  Sender: FDA-Public Use
  Company Number: IN-NOVARTISPH-NVSC2022IN046225

PATIENT
  Age: 67 Year
  Sex: Female

DRUGS (2)
  1. TASIGNA [Suspect]
     Active Substance: NILOTINIB
     Indication: Chronic myeloid leukaemia
     Dosage: 200 MG, BID
     Route: 065
     Dates: start: 20220217
  2. TASIGNA [Suspect]
     Active Substance: NILOTINIB
     Dosage: 200 MG, BID
     Route: 065
     Dates: start: 20230209

REACTIONS (3)
  - Hypothyroidism [Recovered/Resolved]
  - Gastritis [Unknown]
  - Product use issue [Unknown]

NARRATIVE: CASE EVENT DATE: 20220217
